FAERS Safety Report 11353698 (Version 1)
Quarter: 2015Q3

REPORT INFORMATION
  Report Type: Spontaneous
  Country: US (occurrence: US)
  Receive Date: 20150807
  Receipt Date: 20150807
  Transmission Date: 20151125
  Serious: No
  Sender: FDA-Public Use
  Company Number: US-JNJFOC-20150205808

PATIENT
  Age: 65 Year
  Sex: Female

DRUGS (3)
  1. WOMENS ROGAINE [Suspect]
     Active Substance: MINOXIDIL
     Route: 061
  2. ALDACTONE [Concomitant]
     Active Substance: SPIRONOLACTONE
     Indication: ALOPECIA
     Route: 065
  3. WOMENS ROGAINE [Suspect]
     Active Substance: MINOXIDIL
     Indication: ALOPECIA
     Dosage: FOLLOWED THE DIRECTIONS
     Route: 061

REACTIONS (3)
  - Inappropriate schedule of drug administration [Unknown]
  - Hair growth abnormal [Not Recovered/Not Resolved]
  - Product use issue [Unknown]
